FAERS Safety Report 6231264-X (Version None)
Quarter: 2009Q2

REPORT INFORMATION
  Report Type: 
  Country: None (occurrence: None)
  Receive Date: 20090616
  Receipt Date: 20090601
  Transmission Date: 20091009
  Serious: Yes (Hospitalization, Disabling, Other)
  Sender: FDA-Public Use
  Company Number: JP-AMGEN-US345214

PATIENT
  Sex: Female
  Weight: 50 kg

DRUGS (4)
  1. ENBREL [Suspect]
     Indication: RHEUMATOID ARTHRITIS
     Route: 058
     Dates: start: 20060401
  2. ENBREL [Suspect]
     Route: 058
     Dates: start: 20060407, end: 20080407
  3. ENBREL [Suspect]
     Dates: start: 20081216
  4. MELOXICAM [Concomitant]
     Route: 048
     Dates: start: 20050101

REACTIONS (4)
  - FALL [None]
  - OSTEOPOROSIS [None]
  - PARALYSIS [None]
  - SPINAL COMPRESSION FRACTURE [None]
